FAERS Safety Report 12212162 (Version 1)
Quarter: 2016Q1

REPORT INFORMATION
  Report Type: Report from Study
  Country: CA (occurrence: CA)
  Receive Date: 20160325
  Receipt Date: 20160325
  Transmission Date: 20160526
  Serious: Yes (Death, Hospitalization, Other)
  Sender: FDA-Public Use
  Company Number: CA-GILEAD-2016-0205287

PATIENT
  Age: 59 Year
  Sex: Male

DRUGS (13)
  1. APO-ACYCLOVIR [Concomitant]
  2. PANTOLOC                           /01263204/ [Concomitant]
     Active Substance: PANTOPRAZOLE SODIUM
  3. PREDNISONE. [Concomitant]
     Active Substance: PREDNISONE
  4. NPLATE [Concomitant]
     Active Substance: ROMIPLOSTIM
  5. HYDROMORPHONE [Concomitant]
     Active Substance: HYDROMORPHONE
  6. HIZENTRA [Concomitant]
     Active Substance: HUMAN IMMUNOGLOBULIN G
  7. BACTRIM [Concomitant]
     Active Substance: SULFAMETHOXAZOLE\TRIMETHOPRIM
  8. IMOVANE [Concomitant]
     Active Substance: ZOPICLONE
  9. CLONAZEPAM. [Concomitant]
     Active Substance: CLONAZEPAM
  10. VALCYTE [Concomitant]
     Active Substance: VALGANCICLOVIR HYDROCHLORIDE
  11. ZYDELIG [Suspect]
     Active Substance: IDELALISIB
     Indication: NON-HODGKIN^S LYMPHOMA UNSPECIFIED HISTOLOGY INDOLENT
     Dosage: 150 MG, BID
     Route: 048
     Dates: start: 20160311, end: 201603
  12. VIAGRA [Concomitant]
     Active Substance: SILDENAFIL CITRATE
  13. LORAZEPAM. [Concomitant]
     Active Substance: LORAZEPAM

REACTIONS (12)
  - Hypophagia [Unknown]
  - Volvulus [Fatal]
  - Oxygen saturation decreased [Unknown]
  - Asthenia [Unknown]
  - Influenza [Unknown]
  - Fatigue [Unknown]
  - Dyspnoea [Unknown]
  - Death [Fatal]
  - Pain [Fatal]
  - Blood pressure decreased [Unknown]
  - Renal failure [Fatal]
  - Hypersomnia [Unknown]

NARRATIVE: CASE EVENT DATE: 201603
